FAERS Safety Report 22204455 (Version 2)
Quarter: 2023Q2

REPORT INFORMATION
  Report Type: Report from Study
  Country: CN (occurrence: CN)
  Receive Date: 20230413
  Receipt Date: 20230417
  Transmission Date: 20230722
  Serious: Yes (Death)
  Sender: FDA-Public Use
  Company Number: CN-BoehringerIngelheim-2023-BI-230379

PATIENT
  Age: 74 Year
  Sex: Female
  Weight: 61.1 kg

DRUGS (7)
  1. TENECTEPLASE [Suspect]
     Active Substance: TENECTEPLASE
     Indication: Ischaemic stroke
     Route: 042
     Dates: start: 20230406, end: 20230406
  2. ROSUVASTATIN CALCIUM [Concomitant]
     Active Substance: ROSUVASTATIN CALCIUM
     Indication: Drug therapy
     Route: 048
     Dates: start: 20230406, end: 20230408
  3. DIAZEPAM [Concomitant]
     Active Substance: DIAZEPAM
     Indication: Sedation
     Dosage: 10 MG/ST
     Route: 030
     Dates: start: 20230406, end: 20230407
  4. VITAMIN C [Concomitant]
     Active Substance: ASCORBIC ACID
     Indication: Fluid replacement
     Dosage: ROUTE: IVGTT
     Dates: start: 20230406, end: 20230407
  5. VITAMIN B6 [Concomitant]
     Active Substance: PYRIDOXINE HYDROCHLORIDE
     Indication: Fluid replacement
     Dosage: ROUTE: IVGTT
     Dates: start: 20230406, end: 20230407
  6. KALLIDINOGENASE [Concomitant]
     Active Substance: KALLIDINOGENASE
     Indication: Collateral circulation
     Dosage: 0,15 PNA/QD?ROUTE: LVGTT
     Route: 042
     Dates: start: 20230407, end: 20230408
  7. POTASSIUM CHLORIDE [Concomitant]
     Active Substance: POTASSIUM CHLORIDE
     Indication: Fluid replacement
     Dosage: ROUTE: IVGTT
     Dates: start: 20230406, end: 20230407

REACTIONS (1)
  - Cerebral infarction [Fatal]

NARRATIVE: CASE EVENT DATE: 20230407
